FAERS Safety Report 23797591 (Version 1)
Quarter: 2024Q2

REPORT INFORMATION
  Report Type: Spontaneous
  Country: US (occurrence: US)
  Receive Date: 20240430
  Receipt Date: 20240430
  Transmission Date: 20240716
  Serious: No
  Sender: FDA-Public Use
  Company Number: US-Merck Healthcare KGaA-2024022771

PATIENT
  Age: 68 Year
  Sex: Female
  Weight: 107 kg

DRUGS (2)
  1. MAVENCLAD [Suspect]
     Active Substance: CLADRIBINE
     Indication: Multiple sclerosis
     Dosage: YEAR ONE THERAPY.
     Route: 048
     Dates: start: 20230213
  2. MAVENCLAD [Suspect]
     Active Substance: CLADRIBINE
     Dosage: YEAR TWO-ONE THERAPY. 2 TABLETS ON DAYS 1 TO 4 AND 1 TABLET ON DAY 5.
     Route: 048
     Dates: start: 20240403, end: 20240407

REACTIONS (1)
  - Blood glucose increased [Unknown]
